FAERS Safety Report 10785206 (Version 5)
Quarter: 2016Q2

REPORT INFORMATION
  Report Type: Spontaneous
  Country: US (occurrence: US)
  Receive Date: 20150211
  Receipt Date: 20160420
  Transmission Date: 20160815
  Serious: Yes (Hospitalization, Other)
  Sender: FDA-Public Use
  Company Number: US-APOTEX-2014AP005932

PATIENT

DRUGS (2)
  1. PAXIL [Suspect]
     Active Substance: PAROXETINE HYDROCHLORIDE
     Indication: PRODUCT USED FOR UNKNOWN INDICATION
     Dosage: 20 MG, QD
     Route: 064
  2. PAXIL [Suspect]
     Active Substance: PAROXETINE HYDROCHLORIDE
     Dosage: 30 MG, QD
     Route: 064

REACTIONS (8)
  - Ebstein^s anomaly [Unknown]
  - Right ventricular dysfunction [Unknown]
  - Pericardial effusion [Unknown]
  - Atrial septal defect [Unknown]
  - Pleural effusion [Unknown]
  - Ganglioneuroma [Unknown]
  - Dilatation ventricular [Unknown]
  - Foetal exposure during pregnancy [Unknown]
